FAERS Safety Report 4293464-8 (Version None)
Quarter: 2004Q1

REPORT INFORMATION
  Report Type: 
  Country: None (occurrence: None)
  Receive Date: 20040126
  Receipt Date: 20030924
  Transmission Date: 20041129
  Serious: No
  Sender: FDA-Public Use
  Company Number: USA030844410

PATIENT
  Age: 55 Year
  Sex: Male

DRUGS (15)
  1. FORTEO [Suspect]
     Indication: OSTEOPOROSIS
     Dosage: 20 UG/DAY
     Dates: start: 20030720, end: 20030831
  2. TESTOSTERONE [Concomitant]
  3. LIPITOR [Concomitant]
  4. CALCIUM WITH VITAMIN D [Concomitant]
  5. NEURONTIN [Concomitant]
  6. OMEPRAZOLE [Concomitant]
  7. ULTRACET [Concomitant]
  8. ARTHROTEC [Concomitant]
  9. ZYRTEC [Concomitant]
  10. MULTIVITAMIN [Concomitant]
  11. GLUCOSAMINE CHONDROITIN [Concomitant]
  12. VIAGRA [Concomitant]
  13. CALCIUM [Concomitant]
  14. ASPIRIN [Concomitant]
  15. TIAGABINE [Concomitant]

REACTIONS (4)
  - ARTHRALGIA [None]
  - DIFFICULTY IN WALKING [None]
  - MYALGIA [None]
  - PAIN IN EXTREMITY [None]
